FAERS Safety Report 8176242-9 (Version None)
Quarter: 2012Q1

REPORT INFORMATION
  Report Type: 
  Country: None (occurrence: None)
  Receive Date: 20120301
  Receipt Date: 20120223
  Transmission Date: 20120608
  Serious: Yes (Other)
  Sender: FDA-Public Use
  Company Number: BR-JNJFOC-20120212903

PATIENT
  Sex: Female
  Weight: 77 kg

DRUGS (5)
  1. AZATHIOPRINE [Concomitant]
     Dosage: 3.5 IN A DAY
     Route: 048
  2. METRONIDAZOLE HYDROCHLORIDE [Concomitant]
     Route: 048
  3. REMICADE [Suspect]
     Route: 042
     Dates: start: 20111213, end: 20111213
  4. REMICADE [Suspect]
     Indication: CROHN'S DISEASE
     Route: 042
     Dates: start: 20090422
  5. CIPROFLOXACIN [Concomitant]
     Route: 048

REACTIONS (5)
  - INFUSION RELATED REACTION [None]
  - DYSPNOEA [None]
  - TACHYCARDIA [None]
  - MALAISE [None]
  - HYPERSENSITIVITY [None]
